FAERS Safety Report 4589129-5 (Version None)
Quarter: 2005Q1

REPORT INFORMATION
  Report Type: 
  Country: None (occurrence: None)
  Receive Date: 20050125
  Receipt Date: 20040830
  Transmission Date: 20050727
  Serious: No
  Sender: FDA-Public Use
  Company Number: USA040361867

PATIENT
  Age: 72 Year
  Sex: Female

DRUGS (2)
  1. FORTEO [Suspect]
     Indication: OSTEOPOROSIS
     Dosage: 20 UG DAY
     Dates: start: 20040101
  2. ENBREL [Concomitant]

REACTIONS (4)
  - BODY HEIGHT DECREASED [None]
  - DERMATITIS EXFOLIATIVE [None]
  - HERNIA [None]
  - PRURITUS [None]
